FAERS Safety Report 7282234-4 (Version None)
Quarter: 2011Q1

REPORT INFORMATION
  Report Type: 
  Country: None (occurrence: None)
  Receive Date: 20110125
  Receipt Date: 20110118
  Transmission Date: 20110831
  Serious: Yes (Other)
  Sender: FDA-Public Use
  Company Number: 20109227

PATIENT
  Sex: Male

DRUGS (1)
  1. LIORESAL [Suspect]
     Indication: MUSCLE SPASTICITY
     Dosage: DAILY, INTRATHECAL
     Route: 037

REACTIONS (7)
  - WITHDRAWAL SYNDROME [None]
  - LYMPHOEDEMA [None]
  - DEVICE POWER SOURCE ISSUE [None]
  - PAIN IN EXTREMITY [None]
  - MUSCLE SPASTICITY [None]
  - DEVICE MALFUNCTION [None]
  - DEVICE OCCLUSION [None]
